FAERS Safety Report 14547698 (Version 1)
Quarter: 2018Q1

REPORT INFORMATION
  Report Type: Report from Study
  Country: US (occurrence: US)
  Receive Date: 20180219
  Receipt Date: 20180219
  Transmission Date: 20180509
  Serious: Yes (Other)
  Sender: FDA-Public Use
  Company Number: PHEH2018US005341

PATIENT
  Age: 61 Year
  Sex: Female

DRUGS (1)
  1. SANDIMMUNE [Suspect]
     Active Substance: CYCLOSPORINE
     Indication: PRODUCT USED FOR UNKNOWN INDICATION
     Dosage: 25 MG, BID
     Route: 048
     Dates: start: 20180105

REACTIONS (1)
  - Pain [Unknown]

NARRATIVE: CASE EVENT DATE: 20180205
